FAERS Safety Report 15851752 (Version 1)
Quarter: 2019Q1

REPORT INFORMATION
  Report Type: Spontaneous
  Country: US (occurrence: US)
  Receive Date: 20190122
  Receipt Date: 20190122
  Transmission Date: 20190417
  Serious: Yes (Death, Other)
  Sender: FDA-Public Use
  Company Number: US-CIPLA LTD.-2019US00434

PATIENT

DRUGS (3)
  1. ATENOLOL. [Suspect]
     Active Substance: ATENOLOL
     Dosage: UNK
     Route: 048
  2. AMLODIPINE [Suspect]
     Active Substance: AMLODIPINE BESYLATE
     Dosage: UNK
     Route: 048
  3. COLCHICINE. [Suspect]
     Active Substance: COLCHICINE
     Dosage: UNK
     Route: 048

REACTIONS (7)
  - Toxicity to various agents [Unknown]
  - Death [Fatal]
  - Cardiac arrest [Unknown]
  - Suspected suicide attempt [Unknown]
  - Renal failure [Unknown]
  - Pulmonary oedema [Unknown]
  - Hypotension [Unknown]
